FAERS Safety Report 20223730 (Version 9)
Quarter: 2022Q2

REPORT INFORMATION
  Report Type: Spontaneous
  Country: US (occurrence: US)
  Receive Date: 20211223
  Receipt Date: 20220504
  Transmission Date: 20220720
  Serious: Yes (Hospitalization)
  Sender: FDA-Public Use
  Company Number: US-KARYOPHARM-2021KPT001599

PATIENT

DRUGS (1)
  1. XPOVIO [Suspect]
     Active Substance: SELINEXOR
     Indication: Non-Hodgkin^s lymphoma
     Dosage: 60 MG, 2X/WEEK
     Route: 048
     Dates: start: 20211102, end: 202204

REACTIONS (16)
  - Blood potassium increased [Unknown]
  - Oxygen saturation decreased [Unknown]
  - Heart rate increased [Unknown]
  - Non-Hodgkin^s lymphoma [Unknown]
  - Blood calcium increased [Unknown]
  - Blood creatinine increased [Unknown]
  - White blood cell count decreased [Unknown]
  - Pain [Unknown]
  - Body temperature fluctuation [Unknown]
  - Nausea [Not Recovered/Not Resolved]
  - Vomiting [Unknown]
  - Platelet count decreased [Unknown]
  - Fatigue [Unknown]
  - Haemoglobin decreased [Not Recovered/Not Resolved]
  - Off label use [Unknown]
  - Therapeutic product effect decreased [Unknown]

NARRATIVE: CASE EVENT DATE: 20211102
